FAERS Safety Report 6692009-2 (Version None)
Quarter: 2010Q2

REPORT INFORMATION
  Report Type: 
  Country: None (occurrence: None)
  Receive Date: 20100422
  Receipt Date: 20100413
  Transmission Date: 20101027
  Serious: Yes (Other)
  Sender: FDA-Public Use
  Company Number: AT-ROCHE-697870

PATIENT

DRUGS (1)
  1. BEVACIZUMAB [Suspect]
     Indication: CENTRAL NERVOUS SYSTEM NEOPLASM
     Dosage: MEDIAN DOSE: 9.5 MG/KG; FREQUENCY: EVERY 2-3 WEEKS
     Route: 065

REACTIONS (3)
  - INTERSTITIAL LUNG DISEASE [None]
  - LYMPHOPENIA [None]
  - PNEUMOCYSTIS JIROVECI PNEUMONIA [None]
